FAERS Safety Report 18166264 (Version 1)
Quarter: 2020Q3

REPORT INFORMATION
  Report Type: Other
  Country: US (occurrence: US)
  Receive Date: 20200819
  Receipt Date: 20200819
  Transmission Date: 20201103
  Serious: Yes (Other)
  Sender: FDA-Public Use
  Company Number: US-ROCHE-2660473

PATIENT
  Age: 73 Year
  Sex: Male

DRUGS (2)
  1. OCREVUS [Suspect]
     Active Substance: OCRELIZUMAB
     Indication: MULTIPLE SCLEROSIS
     Dosage: 300 MG SEPERATED BY 2 WEEKS; ONGOING: NO
     Route: 042
  2. OCREVUS [Suspect]
     Active Substance: OCRELIZUMAB
     Dosage: ONGOING: NO
     Route: 042

REACTIONS (2)
  - Candida infection [Unknown]
  - Cytomegalovirus oesophagitis [Recovered/Resolved]
